FAERS Safety Report 5192429-1 (Version None)
Quarter: 2006Q4

REPORT INFORMATION
  Report Type: 
  Country: None (occurrence: None)
  Receive Date: 20061220
  Receipt Date: 20061120
  Transmission Date: 20070319
  Serious: Yes (Death, Hospitalization, Other)
  Sender: FDA-Public Use
  Company Number: 2006136839

PATIENT
  Age: 91 Year
  Sex: Female

DRUGS (11)
  1. CELEBREX [Suspect]
     Dates: start: 20001001, end: 20010701
  2. BEXTRA [Suspect]
     Indication: ARTHRITIS
     Dosage: 10 MG (10 MG, 1 IN 1 D), ORAL
     Route: 048
     Dates: start: 20020523, end: 20040627
  3. VIOXX [Suspect]
  4. GLUCOSAMINE [Concomitant]
  5. VITAMIN CAP [Concomitant]
  6. ENALAPRIL MALEATE [Concomitant]
  7. LORTAB [Concomitant]
  8. ULTRACET [Concomitant]
  9. MYLANTA [Concomitant]
  10. PLAVIX [Concomitant]
  11. DURAGESIC-100 [Concomitant]

REACTIONS (19)
  - APHASIA [None]
  - ARTHRITIS [None]
  - AZOTAEMIA [None]
  - BLISTER [None]
  - CARDIAC FAILURE [None]
  - CEREBROVASCULAR ACCIDENT [None]
  - CHEST PAIN [None]
  - DRUG INEFFECTIVE [None]
  - DYSPHAGIA [None]
  - HIP FRACTURE [None]
  - INCORRECT DOSE ADMINISTERED [None]
  - PNEUMONIA [None]
  - PRURITUS [None]
  - RENAL FAILURE [None]
  - SKIN DISORDER [None]
  - STOMATITIS [None]
  - SWOLLEN TONGUE [None]
  - TRANSIENT ISCHAEMIC ATTACK [None]
  - WEIGHT DECREASED [None]
